FAERS Safety Report 10449392 (Version 1)
Quarter: 2014Q3

REPORT INFORMATION
  Report Type: Spontaneous
  Country: IT (occurrence: None)
  Receive Date: 20140910
  Receipt Date: 20140910
  Transmission Date: 20150326
  Serious: Yes (Death, Hospitalization, Other)
  Sender: FDA-Public Use
  Company Number: KAD201408-001032

PATIENT
  Age: 79 Year
  Sex: Male

DRUGS (1)
  1. RIBAVIRIN (RIBAVIRIN) [Suspect]
     Active Substance: RIBAVIRIN
     Indication: HEPATITIS FULMINANT
     Route: 048

REACTIONS (8)
  - Nosocomial infection [None]
  - Off label use [None]
  - Blood creatinine increased [None]
  - Thrombocytopenia [None]
  - Acute hepatic failure [None]
  - Pleural effusion [None]
  - International normalised ratio increased [None]
  - Pneumonia [None]
